FAERS Safety Report 23489857 (Version 1)
Quarter: 2024Q1

REPORT INFORMATION
  Report Type: Report from Study
  Country: US (occurrence: US)
  Receive Date: 20240206
  Receipt Date: 20240206
  Transmission Date: 20240410
  Serious: Yes (Hospitalization)
  Sender: FDA-Public Use
  Company Number: US-Eisai-EC-2024-158791

PATIENT
  Age: 64 Year
  Sex: Male
  Weight: 83 kg

DRUGS (10)
  1. LENVIMA [Suspect]
     Active Substance: LENVATINIB
     Indication: Hepatic cancer
     Route: 048
     Dates: start: 20221123
  2. LENVIMA [Suspect]
     Active Substance: LENVATINIB
     Route: 048
     Dates: end: 2023
  3. LANTUS [Concomitant]
     Active Substance: INSULIN GLARGINE
  4. METAMUCIL [Concomitant]
     Active Substance: PLANTAGO SEED
  5. TYLENOL [Concomitant]
     Active Substance: ACETAMINOPHEN
  6. VITAMINS [Concomitant]
     Active Substance: VITAMINS
  7. ATORVASTATIN [Concomitant]
     Active Substance: ATORVASTATIN
  8. AMLODIPINE [Concomitant]
     Active Substance: AMLODIPINE BESYLATE
  9. HUMALOG [Concomitant]
     Active Substance: INSULIN LISPRO
  10. OMEPRAZOLE [Concomitant]
     Active Substance: OMEPRAZOLE

REACTIONS (4)
  - Hernia [Recovering/Resolving]
  - Decreased appetite [Recovering/Resolving]
  - Malignant neoplasm progression [Recovering/Resolving]
  - Blood glucose increased [Recovering/Resolving]

NARRATIVE: CASE EVENT DATE: 20230101
